FAERS Safety Report 8455618-6 (Version None)
Quarter: 2012Q2

REPORT INFORMATION
  Report Type: 
  Country: None (occurrence: None)
  Receive Date: 20120613
  Receipt Date: 20120608
  Transmission Date: 20120825
  Serious: Yes (Other)
  Sender: FDA-Public Use
  Company Number: 2012SP031670

PATIENT

DRUGS (1)
  1. TEMODAL [Suspect]
     Indication: PRODUCT USED FOR UNKNOWN INDICATION
     Dosage: QD;PO
     Route: 048

REACTIONS (2)
  - CONDITION AGGRAVATED [None]
  - BRAIN OEDEMA [None]
